FAERS Safety Report 21337393 (Version 3)
Quarter: 2022Q3

REPORT INFORMATION
  Report Type: Spontaneous
  Country: US (occurrence: US)
  Receive Date: 20220915
  Receipt Date: 20220915
  Transmission Date: 20221026
  Serious: Yes (Life-Threatening, Hospitalization, Other)
  Sender: FDA-Public Use
  Company Number: US-PFIZER INC-PV202200057044

PATIENT
  Age: 31 Year
  Sex: Female

DRUGS (1)
  1. METHIMAZOLE [Suspect]
     Active Substance: METHIMAZOLE
     Indication: Hyperthyroidism
     Dosage: 30 MG, DAILY

REACTIONS (3)
  - Agranulocytosis [Recovering/Resolving]
  - Hepatotoxicity [Recovering/Resolving]
  - Cholestasis [Recovering/Resolving]
